FAERS Safety Report 9118361 (Version 1)
Quarter: 2013Q3

REPORT INFORMATION
  Report Type: Spontaneous
  Country: US (occurrence: None)
  Receive Date: 20130221
  Receipt Date: 20130221
  Transmission Date: 20140515
  Serious: Yes (Hospitalization)
  Sender: FDA-Public Use
  Company Number: None

PATIENT
  Age: 61 Year
  Sex: Male
  Weight: 106.7 kg

DRUGS (14)
  1. DOCETAXEL [Suspect]
     Indication: PROSTATE CANCER
  2. LEUPROLIDE ACETATE [Suspect]
     Indication: PROSTATE CANCER
     Route: 030
     Dates: start: 20121102
  3. CASODEX [Concomitant]
  4. DEXAMETHASONE [Concomitant]
  5. FLOVENT DISKUS [Concomitant]
  6. FLUTICASONE FUROATE [Concomitant]
  7. LORATADINE [Concomitant]
  8. MVI [Concomitant]
  9. PRAVASTATIN [Concomitant]
  10. VENTOLIN HFA [Concomitant]
  11. ATIVAN [Concomitant]
  12. COMPAZINE [Concomitant]
  13. CALCIUM + D [Concomitant]
  14. ZOFRAN [Concomitant]

REACTIONS (4)
  - Hemiparesis [None]
  - Dysarthria [None]
  - Visual impairment [None]
  - Transient ischaemic attack [None]
